FAERS Safety Report 25330753 (Version 1)
Quarter: 2025Q2

REPORT INFORMATION
  Report Type: Spontaneous
  Country: US (occurrence: US)
  Receive Date: 20250519
  Receipt Date: 20250519
  Transmission Date: 20250716
  Serious: No
  Sender: PFIZER
  Company Number: US-PFIZER INC-202500100706

PATIENT
  Age: 70 Year
  Sex: Male
  Weight: 81.65 kg

DRUGS (12)
  1. SUNITINIB MALATE [Suspect]
     Active Substance: SUNITINIB MALATE
     Indication: Gastrointestinal stromal tumour
     Dosage: 3 DF, 1X/DAY (TAKE 3 CAPSULES A DAY)
     Route: 048
  2. ALLOPURINOL [Concomitant]
     Active Substance: ALLOPURINOL
     Indication: Renal disorder
     Dosage: 200 MG, 1X/DAY (100 MG TABLET, TAKE 2 TABLETS ONCE A DAY)
     Route: 048
  3. MONTELUKAST [Concomitant]
     Active Substance: MONTELUKAST
     Dosage: 10 MG, 1X/DAY (10 MG TABLET, ONCE A DAY)
     Route: 048
  4. MAGNESIUM OXIDE [Concomitant]
     Active Substance: MAGNESIUM OXIDE
     Indication: Gastrointestinal disorder
     Dosage: 400 MG, 2X/DAY (400 MG TABLET, TAKE TWICE A DAY)
     Route: 048
  5. CETIRIZINE [Concomitant]
     Active Substance: CETIRIZINE HYDROCHLORIDE
     Dosage: 10 MG, 1X/DAY (10 MG TABLET, ONCE A DAY)
     Route: 048
  6. POTASSIUM CHLORIDE [Concomitant]
     Active Substance: POTASSIUM CHLORIDE
     Indication: Gastrointestinal disorder
     Dosage: 20 MEQ, 1X/DAY (ONCE A DAY)
     Route: 048
  7. CALCITRIOL [Concomitant]
     Active Substance: CALCITRIOL
     Indication: Renal disorder
     Dosage: 0.25 UG, 1X/DAY (0.25 MCG ONCE A DAY)
     Route: 048
  8. DIPHENOXYLATE [Concomitant]
     Active Substance: DIPHENOXYLATE
     Indication: Diarrhoea
     Dosage: 2 DF, 1X/DAY (TAKE 2 CAPSULES A DAY)
  9. VITAMIN D3 [Concomitant]
     Active Substance: CHOLECALCIFEROL
     Indication: Constipation
     Dosage: 5000 IU, 1X/DAY
     Route: 048
  10. SYNTHROID [Concomitant]
     Active Substance: LEVOTHYROXINE SODIUM
     Indication: Thyroid disorder
     Dosage: 112 UG, 1X/DAY
  11. OMEPRAZOLE [Concomitant]
     Active Substance: OMEPRAZOLE
     Indication: Constipation
     Dosage: 20 MG, 1X/DAY (20 MG CAPSULE ONCE A DAY)
  12. NIFEDIPINE [Concomitant]
     Active Substance: NIFEDIPINE
     Indication: Renal impairment
     Dosage: 30 MG, 1X/DAY

REACTIONS (4)
  - Hypertension [Unknown]
  - Headache [Unknown]
  - Urinary tract infection [Unknown]
  - Cough [Unknown]

NARRATIVE: CASE EVENT DATE: 20250201
